FAERS Safety Report 10232456 (Version 1)
Quarter: 2014Q2

REPORT INFORMATION
  Report Type: Spontaneous
  Country: US (occurrence: None)
  Receive Date: 20140610
  Receipt Date: 20140610
  Transmission Date: 20141212
  Serious: Yes (Other)
  Sender: FDA-Public Use
  Company Number: ADR-2014-00978

PATIENT
  Age: 66 Year
  Sex: Male

DRUGS (1)
  1. BACLOFEN INTRATHECAL- CONCENTRATION: ^500^ [Suspect]
     Indication: MUSCLE SPASTICITY
     Dosage: ^184 OR 185^

REACTIONS (7)
  - Device malfunction [None]
  - Overdose [None]
  - Diplegia [None]
  - Abasia [None]
  - Insomnia [None]
  - Muscle spasms [None]
  - Muscular weakness [None]
